FAERS Safety Report 19946079 (Version 2)
Quarter: 2021Q4

REPORT INFORMATION
  Report Type: Spontaneous
  Country: US (occurrence: US)
  Receive Date: 20211012
  Receipt Date: 20211108
  Transmission Date: 20220303
  Serious: Yes (Hospitalization)
  Sender: FDA-Public Use
  Company Number: US-PFIZER INC-202101082152

PATIENT
  Age: 58 Year
  Sex: Female

DRUGS (7)
  1. IBRANCE [Suspect]
     Active Substance: PALBOCICLIB
     Indication: Breast cancer
     Dosage: 100 MG, CYCLIC (1 DAILY FOR 21 DAYS THEN 7 DAYS OFF)
     Route: 048
     Dates: start: 2021, end: 202109
  2. VITAMIN B12 [Concomitant]
     Active Substance: CYANOCOBALAMIN
     Dosage: 2500 UG
  3. ONDANSETRON HCL [Concomitant]
     Active Substance: ONDANSETRON HYDROCHLORIDE
     Dosage: 4 MG
  4. CALCIUM [Concomitant]
     Active Substance: CALCIUM
     Dosage: UNK(CALCIUM 500(1250) TAB CHEW)
  5. VENLAFAXINE HCL [Concomitant]
     Active Substance: VENLAFAXINE HYDROCHLORIDE
     Dosage: 100 MG
  6. LETROZOLE [Concomitant]
     Active Substance: LETROZOLE
     Dosage: 2.5 MG
  7. FAMOTIDINE [Concomitant]
     Active Substance: FAMOTIDINE
     Dosage: 40 MG

REACTIONS (12)
  - Blood urine present [Unknown]
  - Taste disorder [Unknown]
  - Decreased appetite [Unknown]
  - Fatigue [Unknown]
  - Somnolence [Unknown]
  - Malaise [Unknown]
  - Diarrhoea [Unknown]
  - Renal disorder [Unknown]
  - Hypercalcaemia [Unknown]
  - Fluid retention [Unknown]
  - Abdominal distension [Unknown]
  - Blood iron decreased [Unknown]
